FAERS Safety Report 10161334 (Version 8)
Quarter: 2015Q3

REPORT INFORMATION
  Report Type: Report from Study
  Country: CA (occurrence: CA)
  Receive Date: 20140509
  Receipt Date: 20150925
  Transmission Date: 20151125
  Serious: Yes (Other)
  Sender: FDA-Public Use
  Company Number: CA-ROCHE-1273330

PATIENT
  Age: 70 Year
  Sex: Female
  Weight: 59.02 kg

DRUGS (18)
  1. PAMIDRONATE [Concomitant]
     Active Substance: PAMIDRONATE DISODIUM
  2. SYNTHROID [Concomitant]
     Active Substance: LEVOTHYROXINE SODIUM
  3. EFFEXOR [Concomitant]
     Active Substance: VENLAFAXINE HYDROCHLORIDE
  4. VITAMIN C [Concomitant]
     Active Substance: ASCORBIC ACID
  5. VITAMIN E [Concomitant]
     Active Substance: .ALPHA.-TOCOPHEROL
  6. METHYLPREDNISOLONE. [Concomitant]
     Active Substance: METHYLPREDNISOLONE
     Indication: PREMEDICATION
     Route: 042
     Dates: start: 20130815, end: 20150909
  7. SINGULAIR [Concomitant]
     Active Substance: MONTELUKAST SODIUM
  8. ADVAIR HFA [Concomitant]
     Active Substance: FLUTICASONE PROPIONATE\SALMETEROL XINAFOATE
  9. RITUXAN [Suspect]
     Active Substance: RITUXIMAB
     Indication: RHEUMATOID ARTHRITIS
     Route: 042
     Dates: start: 20130815
  10. SLOW-K [Concomitant]
     Active Substance: POTASSIUM CHLORIDE
  11. FLONASE SPRAY [Concomitant]
  12. SALMON OIL [Concomitant]
     Active Substance: FISH OIL
  13. RITUXAN [Suspect]
     Active Substance: RITUXIMAB
     Dosage: DATE OF PREVIOUS DOSE : 05/FEB/015
     Route: 042
     Dates: start: 20140610
  14. ARAVA [Concomitant]
     Active Substance: LEFLUNOMIDE
  15. FOLIC ACID. [Concomitant]
     Active Substance: FOLIC ACID
  16. HYZAAR [Concomitant]
     Active Substance: HYDROCHLOROTHIAZIDE\LOSARTAN POTASSIUM
  17. PARIET [Concomitant]
     Active Substance: RABEPRAZOLE SODIUM
  18. DIPHENHYDRAMINE HYDROCHLORIDE. [Concomitant]
     Active Substance: DIPHENHYDRAMINE HYDROCHLORIDE
     Indication: PREMEDICATION
     Route: 048
     Dates: start: 20130815

REACTIONS (17)
  - Agitation [Recovered/Resolved]
  - Blood pressure increased [Unknown]
  - Erythema [Unknown]
  - Complex regional pain syndrome [Unknown]
  - Intervertebral disc degeneration [Unknown]
  - Rheumatoid arthritis [Unknown]
  - Flushing [Not Recovered/Not Resolved]
  - Headache [Recovered/Resolved]
  - Peripheral swelling [Recovering/Resolving]
  - Fatigue [Recovered/Resolved]
  - Headache [Recovered/Resolved]
  - Feeling hot [Unknown]
  - Vasculitis [Unknown]
  - Glossodynia [Recovered/Resolved]
  - Oxygen saturation decreased [Unknown]
  - Rib fracture [Unknown]
  - Cold sweat [Recovered/Resolved]

NARRATIVE: CASE EVENT DATE: 20130815
